FAERS Safety Report 7887974-1 (Version None)
Quarter: 2011Q4

REPORT INFORMATION
  Report Type: 
  Country: None (occurrence: None)
  Receive Date: 20111103
  Receipt Date: 20111029
  Transmission Date: 20120403
  Serious: Yes (Death, Hospitalization)
  Sender: FDA-Public Use
  Company Number: US-ASTELLAS-2011US006026

PATIENT
  Sex: Female

DRUGS (1)
  1. ERLOTINIB HYDROCHLORIDE [Suspect]
     Indication: LUNG NEOPLASM MALIGNANT
     Dosage: 150 MG, UID/QD
     Route: 048
     Dates: start: 20110729, end: 20111001

REACTIONS (5)
  - LUNG NEOPLASM MALIGNANT [None]
  - ASTHENIA [None]
  - PULMONARY EMBOLISM [None]
  - DRY MOUTH [None]
  - DYSPNOEA [None]
